FAERS Safety Report 21634396 (Version 2)
Quarter: 2023Q1

REPORT INFORMATION
  Report Type: Spontaneous
  Country: NO (occurrence: NO)
  Receive Date: 20221123
  Receipt Date: 20230119
  Transmission Date: 20230417
  Serious: Yes (Death, Hospitalization, Other)
  Sender: FDA-Public Use
  Company Number: NO-002147023-NVSC2022NO116751

PATIENT
  Sex: Male
  Weight: 3.1 kg

DRUGS (2)
  1. ZOLGENSMA [Suspect]
     Active Substance: ONASEMNOGENE ABEPARVOVEC-XIOI
     Indication: Spinal muscular atrophy
     Dosage: UNK, ONCE/SINGLE, (3,9 X 10.14) 19,3 ML (BOX-M002122)
     Route: 042
  2. PREDNISOLONE [Concomitant]
     Active Substance: PREDNISOLONE
     Indication: Product used for unknown indication
     Dosage: UNK
     Route: 065

REACTIONS (11)
  - Respiratory syncytial virus infection [Fatal]
  - Pneumonia [Unknown]
  - Respiratory tract infection [Unknown]
  - Hypotonia neonatal [Unknown]
  - Serum ferritin increased [Unknown]
  - Movement disorder [Unknown]
  - Rhinorrhoea [Unknown]
  - Oxygen saturation abnormal [Unknown]
  - SARS-CoV-2 test positive [Unknown]
  - Transaminases increased [Unknown]
  - Therapy partial responder [Unknown]
